FAERS Safety Report 7714139-6 (Version None)
Quarter: 2011Q3

REPORT INFORMATION
  Report Type: 
  Country: None (occurrence: None)
  Receive Date: 20110829
  Receipt Date: 20110819
  Transmission Date: 20111222
  Serious: Yes (Hospitalization)
  Sender: FDA-Public Use
  Company Number: US-BIOGENIDEC-2011BI022374

PATIENT
  Age: 52 Year
  Sex: Female

DRUGS (10)
  1. ESTRADIOL [Concomitant]
     Route: 048
  2. SIMAVASTATIN [Concomitant]
     Route: 048
  3. BACLOFEN [Concomitant]
     Route: 048
  4. TIZANIDINE HCL [Concomitant]
     Route: 048
  5. PROZAC [Concomitant]
     Route: 048
  6. PHENAZOPYRIDINE HCL TAB [Concomitant]
     Route: 048
  7. CALCIUM 600 PLUS D [Concomitant]
     Route: 048
  8. FLUOXETINE [Concomitant]
     Route: 048
  9. AMPYRA [Concomitant]
     Route: 048
  10. TYSABRI [Suspect]
     Indication: MULTIPLE SCLEROSIS
     Route: 042
     Dates: start: 20080116

REACTIONS (4)
  - MULTIPLE SCLEROSIS RELAPSE [None]
  - ESCHERICHIA URINARY TRACT INFECTION [None]
  - DEVICE RELATED INFECTION [None]
  - PRESYNCOPE [None]
